FAERS Safety Report 9305572 (Version 1)
Quarter: 2013Q2

REPORT INFORMATION
  Report Type: Report from Study
  Country: FR (occurrence: FR)
  Receive Date: 20130523
  Receipt Date: 20130523
  Transmission Date: 20140414
  Serious: Yes (Other)
  Sender: FDA-Public Use
  Company Number: FR-ROCHE-1227533

PATIENT
  Sex: 0

DRUGS (1)
  1. TENECTEPLASE [Suspect]
     Indication: ACUTE MYOCARDIAL INFARCTION
     Route: 065

REACTIONS (3)
  - Haemorrhage [Unknown]
  - Ischaemic stroke [Unknown]
  - Haemorrhage intracranial [Unknown]
